FAERS Safety Report 13789498 (Version 1)
Quarter: 2017Q3

REPORT INFORMATION
  Report Type: Spontaneous
  Country: GB (occurrence: GB)
  Receive Date: 20170725
  Receipt Date: 20170725
  Transmission Date: 20171127
  Serious: Yes (Other)
  Sender: FDA-Public Use
  Company Number: GB-JNJFOC-20150709560

PATIENT
  Age: 74 Year
  Sex: Female

DRUGS (1)
  1. SIMPONI [Suspect]
     Active Substance: GOLIMUMAB
     Indication: PRODUCT USED FOR UNKNOWN INDICATION
     Route: 058

REACTIONS (7)
  - Cerebrovascular accident [Unknown]
  - Pain [Unknown]
  - Dizziness [Recovered/Resolved]
  - Panic attack [Unknown]
  - Arthralgia [Recovered/Resolved]
  - Drug ineffective [Unknown]
  - Arthralgia [Unknown]

NARRATIVE: CASE EVENT DATE: 20151008
